FAERS Safety Report 4758418-3 (Version None)
Quarter: 2005Q3

REPORT INFORMATION
  Report Type: 
  Country: None (occurrence: None)
  Receive Date: 20050830
  Receipt Date: 20050830
  Transmission Date: 20060218
  Serious: Yes (Hospitalization, Disabling, Other)
  Sender: FDA-Public Use
  Company Number: None

PATIENT
  Age: 58 Year
  Sex: Male
  Weight: 97.5234 kg

DRUGS (1)
  1. CLONIDINE [Suspect]
     Dosage: PO
     Route: 048

REACTIONS (7)
  - CEREBROVASCULAR ACCIDENT [None]
  - HEMIANOPIA [None]
  - HYPOTENSION [None]
  - ISCHAEMIA [None]
  - MEMORY IMPAIRMENT [None]
  - MENTAL STATUS CHANGES [None]
  - OVERDOSE [None]
